FAERS Safety Report 17015102 (Version 1)
Quarter: 2019Q4

REPORT INFORMATION
  Report Type: Spontaneous
  Country: US (occurrence: US)
  Receive Date: 20191108
  Receipt Date: 20191108
  Transmission Date: 20200122
  Serious: No
  Sender: FDA-Public Use
  Company Number: None

PATIENT
  Age: 53 Year
  Sex: Female
  Weight: 94.5 kg

DRUGS (4)
  1. MULTI-VITAMINS [Concomitant]
  2. METHYLPREDNISOLONE. [Suspect]
     Active Substance: METHYLPREDNISOLONE
     Indication: SINUSITIS
     Dosage: ?          QUANTITY:21 TABLET(S);OTHER FREQUENCY:FOLLOW PKG DIR^S;?
     Route: 048
     Dates: start: 20191106, end: 20191107
  3. FLUOXETINE 40MG [Concomitant]
     Active Substance: FLUOXETINE HYDROCHLORIDE
  4. PROBIOTICS [Concomitant]
     Active Substance: PROBIOTICS NOS

REACTIONS (4)
  - Diarrhoea haemorrhagic [None]
  - Lethargy [None]
  - Anal fissure [None]
  - Decreased appetite [None]

NARRATIVE: CASE EVENT DATE: 20191107
